FAERS Safety Report 24138374 (Version 1)
Quarter: 2024Q3

REPORT INFORMATION
  Report Type: Spontaneous
  Country: US (occurrence: US)
  Receive Date: 20240725
  Receipt Date: 20240725
  Transmission Date: 20241016
  Serious: No
  Sender: MYLAN
  Company Number: US-MYLANLABS-2024M1067264

PATIENT
  Age: 91 Year
  Sex: Male

DRUGS (1)
  1. TYRVAYA [Suspect]
     Active Substance: VARENICLINE TARTRATE
     Indication: Product used for unknown indication
     Dosage: UNK
     Route: 045

REACTIONS (4)
  - Rhinalgia [Recovered/Resolved]
  - Rhinorrhoea [Unknown]
  - Sneezing [Recovered/Resolved]
  - Device difficult to use [Unknown]
